FAERS Safety Report 4551136-6 (Version None)
Quarter: 2005Q1

REPORT INFORMATION
  Report Type: 
  Country: None (occurrence: None)
  Receive Date: 20050113
  Receipt Date: 20050104
  Transmission Date: 20050727
  Serious: Yes (Hospitalization)
  Sender: FDA-Public Use
  Company Number: US-JNJFOC-20050101043

PATIENT
  Sex: Female
  Weight: 86.64 kg

DRUGS (5)
  1. REMICADE [Suspect]
     Route: 042
  2. METHOTREXATE [Concomitant]
     Dates: end: 20041101
  3. TRANZODONE [Concomitant]
  4. ZOLOFT [Concomitant]
  5. PRILOSEC [Concomitant]

REACTIONS (1)
  - SARCOIDOSIS [None]
